FAERS Safety Report 18362036 (Version 2)
Quarter: 2020Q4

REPORT INFORMATION
  Report Type: Other
  Country: US (occurrence: US)
  Receive Date: 20201008
  Receipt Date: 20201030
  Transmission Date: 20210114
  Serious: Yes (Other)
  Sender: FDA-Public Use
  Company Number: US-ROCHE-2689456

PATIENT
  Age: 46 Year
  Sex: Female
  Weight: 46.76 kg

DRUGS (1)
  1. EVRYSDI [Suspect]
     Active Substance: RISDIPLAM
     Indication: SPINAL MUSCULAR ATROPHY
     Dosage: 60 MG/80 ML, DAILY
     Route: 048

REACTIONS (1)
  - SARS-CoV-2 antibody test positive [Unknown]

NARRATIVE: CASE EVENT DATE: 202007
